FAERS Safety Report 9441806 (Version 1)
Quarter: 2013Q3

REPORT INFORMATION
  Report Type: Spontaneous
  Country: US (occurrence: US)
  Receive Date: 20130806
  Receipt Date: 20130806
  Transmission Date: 20140515
  Serious: No
  Sender: FDA-Public Use
  Company Number: US-PFIZER INC-2013219815

PATIENT
  Age: 61 Year
  Sex: Female
  Weight: 54.42 kg

DRUGS (3)
  1. VFEND [Suspect]
     Indication: COUGH
     Dosage: 200 MG, 2X/DAY
     Dates: start: 201207
  2. VFEND [Suspect]
     Indication: PULMONARY MYCOSIS
  3. LANOXIN [Concomitant]
     Indication: PALPITATIONS
     Dosage: 0.37 MG, 1X/DAY

REACTIONS (5)
  - Skin burning sensation [Not Recovered/Not Resolved]
  - Skin warm [Not Recovered/Not Resolved]
  - Skin disorder [Not Recovered/Not Resolved]
  - Erythema [Not Recovered/Not Resolved]
  - Photosensitivity reaction [Not Recovered/Not Resolved]
